FAERS Safety Report 12799166 (Version 2)
Quarter: 2017Q1

REPORT INFORMATION
  Report Type: Report from Study
  Country: ZA (occurrence: ZA)
  Receive Date: 20160930
  Receipt Date: 20170316
  Transmission Date: 20170428
  Serious: Yes (Other)
  Sender: FDA-Public Use
  Company Number: PHHY2016ZA133890

PATIENT
  Sex: Male
  Weight: 60 kg

DRUGS (4)
  1. FERIPROX [Concomitant]
     Indication: IRON OVERLOAD
     Dosage: 4.5 G, QD
     Route: 065
  2. DESFERAL [Suspect]
     Active Substance: DEFEROXAMINE MESYLATE
     Indication: THALASSAEMIA
     Dosage: 6 DF, BIW (6 VIALS 2X WEEKLY)
     Route: 065
     Dates: start: 1982
  3. DESFERAL [Suspect]
     Active Substance: DEFEROXAMINE MESYLATE
     Dosage: 6 DF (VIALS), 3 X PER WEEK
     Route: 065
  4. DESFERAL [Suspect]
     Active Substance: DEFEROXAMINE MESYLATE
     Dosage: 6 DF, BIW (6 VIALS 2X WEEKLY)
     Route: 065

REACTIONS (2)
  - Joint dislocation [Unknown]
  - Off label use [Unknown]

NARRATIVE: CASE EVENT DATE: 2013
